FAERS Safety Report 5195749-X (Version None)
Quarter: 2006Q4

REPORT INFORMATION
  Report Type: 
  Country: None (occurrence: None)
  Receive Date: 20061222
  Receipt Date: 20061222
  Transmission Date: 20070319
  Serious: No
  Sender: FDA-Public Use
  Company Number: None

PATIENT
  Age: 42 Year
  Sex: Female

DRUGS (13)
  1. DICLOFENAC SODIUM AND MISOPROSTOL (ARTHROTEC) [Suspect]
     Dates: start: 20040407, end: 20050824
  2. ARTHROTEC [Concomitant]
  3. ALLEGRA [Concomitant]
  4. ACIPHEX [Concomitant]
  5. PROPRANOLOL [Concomitant]
  6. SYNTHROID [Concomitant]
  7. TRIAMTERENE [Concomitant]
  8. IMITREX [Concomitant]
  9. TOTAL ENZYMES [Concomitant]
  10. TOTAL LIVER DETOX [Concomitant]
  11. TOTAL PROBIOTICS SUPPLEMENTS [Concomitant]
  12. GLUCOSAMINE [Concomitant]
  13. CHONDROITIN [Concomitant]

REACTIONS (4)
  - ABDOMINAL PAIN UPPER [None]
  - HEPATIC ENZYME INCREASED [None]
  - HEPATIC TRAUMA [None]
  - PRURITUS [None]
